FAERS Safety Report 23110765 (Version 1)
Quarter: 2023Q4

REPORT INFORMATION
  Report Type: Report from Study
  Country: FR (occurrence: FR)
  Receive Date: 20231026
  Receipt Date: 20231026
  Transmission Date: 20240110
  Serious: Yes (Hospitalization, Other)
  Sender: FDA-Public Use
  Company Number: FR-JAZZ PHARMACEUTICALS-2020-FR-017310

PATIENT

DRUGS (4)
  1. DEFITELIO [Suspect]
     Active Substance: DEFIBROTIDE SODIUM
     Indication: Venoocclusive liver disease
     Dosage: 25.64 MILLIGRAM/KILOGRAM DAILY
     Route: 042
     Dates: start: 20191203
  2. DEFITELIO [Suspect]
     Active Substance: DEFIBROTIDE SODIUM
     Dosage: 25 MILLIGRAM/KILOGRAM DAILY
     Route: 042
     Dates: end: 20200206
  3. NITRENDIPINE [Concomitant]
     Active Substance: NITRENDIPINE
     Indication: Venoocclusive disease
  4. CANRENOATE POTASSIUM [Concomitant]
     Active Substance: CANRENOATE POTASSIUM
     Indication: Venoocclusive disease

REACTIONS (3)
  - Graft versus host disease in gastrointestinal tract [Recovering/Resolving]
  - Klebsiella sepsis [Recovered/Resolved]
  - Off label use [Unknown]

NARRATIVE: CASE EVENT DATE: 20191203
